FAERS Safety Report 12325685 (Version 3)
Quarter: 2016Q2

REPORT INFORMATION
  Report Type: Report from Study
  Country: CA (occurrence: CA)
  Receive Date: 20160503
  Receipt Date: 20160530
  Transmission Date: 20160815
  Serious: Yes (Hospitalization, Other)
  Sender: FDA-Public Use
  Company Number: CA-ROCHE-1749610

PATIENT
  Age: 73 Year
  Sex: Male

DRUGS (8)
  1. VITAMIN D3 [Concomitant]
     Active Substance: CHOLECALCIFEROL
  2. NEXIUM [Concomitant]
     Active Substance: ESOMEPRAZOLE MAGNESIUM
  3. VITAMIN B12 [Concomitant]
     Active Substance: CYANOCOBALAMIN
  4. FOLIC ACID. [Concomitant]
     Active Substance: FOLIC ACID
  5. RITUXAN [Suspect]
     Active Substance: RITUXIMAB
     Indication: MYOSITIS
     Route: 042
     Dates: start: 20150411
  6. METHOTREXATE [Concomitant]
     Active Substance: METHOTREXATE
  7. RITUXAN [Suspect]
     Active Substance: RITUXIMAB
     Indication: DERMATOMYOSITIS
  8. PREDNISONE. [Concomitant]
     Active Substance: PREDNISONE

REACTIONS (4)
  - Small intestine ulcer [Not Recovered/Not Resolved]
  - Diarrhoea [Recovered/Resolved]
  - Haemoglobin decreased [Not Recovered/Not Resolved]
  - Large intestinal ulcer [Not Recovered/Not Resolved]

NARRATIVE: CASE EVENT DATE: 201506
